FAERS Safety Report 17651108 (Version 2)
Quarter: 2020Q2

REPORT INFORMATION
  Report Type: Spontaneous
  Country: BE (occurrence: BE)
  Receive Date: 20200408
  Receipt Date: 20200517
  Transmission Date: 20200713
  Serious: Yes (Hospitalization, Other)
  Sender: FDA-Public Use
  Company Number: BE-CELLTRION INC.-2020BE018348

PATIENT

DRUGS (4)
  1. INFLIXIMAB (UNKNOWN) [Suspect]
     Active Substance: INFLIXIMAB
     Indication: FOETAL EXPOSURE DURING PREGNANCY
  2. MESALAZINE [Suspect]
     Active Substance: MESALAMINE
     Indication: FOETAL EXPOSURE DURING PREGNANCY
     Dosage: 3 G, 1X/DAY
     Route: 064
  3. INFLIXIMAB (UNKNOWN) [Suspect]
     Active Substance: INFLIXIMAB
     Indication: COLITIS ULCERATIVE
     Dosage: UNK
     Route: 064
  4. MESALAZINE [Suspect]
     Active Substance: MESALAMINE
     Indication: COLITIS ULCERATIVE

REACTIONS (10)
  - Neutropenia [Recovered/Resolved]
  - Otitis media acute [Unknown]
  - Pharyngitis [Unknown]
  - Autoimmune neutropenia [Recovered/Resolved]
  - Dermatitis diaper [Recovered/Resolved]
  - Foetal exposure during pregnancy [Unknown]
  - Pyrexia [Unknown]
  - Respiratory tract infection [Unknown]
  - Tonsillitis [Unknown]
  - Oral candidiasis [Unknown]
